FAERS Safety Report 16181105 (Version 2)
Quarter: 2019Q3

REPORT INFORMATION
  Report Type: Spontaneous
  Country: DE (occurrence: DE)
  Receive Date: 20190410
  Receipt Date: 20190819
  Transmission Date: 20191004
  Serious: Yes (Disabling)
  Sender: FDA-Public Use
  Company Number: PHHY2019DE082284

PATIENT
  Age: 8 Year
  Sex: Female

DRUGS (1)
  1. OMNITROPE [Suspect]
     Active Substance: SOMATROPIN
     Indication: PRADER-WILLI SYNDROME
     Dosage: UNK
     Route: 065
     Dates: start: 201610

REACTIONS (3)
  - Visual impairment [Not Recovered/Not Resolved]
  - Fall [Recovering/Resolving]
  - Hypokinesia [Not Recovered/Not Resolved]
